FAERS Safety Report 7788221-1 (Version None)
Quarter: 2011Q3

REPORT INFORMATION
  Report Type: 
  Country: None (occurrence: None)
  Receive Date: 20110927
  Receipt Date: 20110913
  Transmission Date: 20111222
  Serious: Yes (Other)
  Sender: FDA-Public Use
  Company Number: 2011MA013469

PATIENT
  Age: 29 Year
  Sex: Female

DRUGS (3)
  1. LEUCOVORIN CALCIUM [Suspect]
     Indication: RECTAL CANCER STAGE IV
  2. FLUOROURACIL [Suspect]
     Indication: RECTAL CANCER STAGE IV
  3. IRINOTECAN HYDROCHLORIDE [Suspect]
     Indication: RECTAL CANCER STAGE IV

REACTIONS (2)
  - INTERSTITIAL LUNG DISEASE [None]
  - NEUROPATHY PERIPHERAL [None]
